FAERS Safety Report 8010009-7 (Version None)
Quarter: 2011Q4

REPORT INFORMATION
  Report Type: 
  Country: None (occurrence: None)
  Receive Date: 20111228
  Receipt Date: 20111214
  Transmission Date: 20120403
  Serious: Yes (Hospitalization)
  Sender: FDA-Public Use
  Company Number: US-ELI_LILLY_AND_COMPANY-US201108006534

PATIENT
  Sex: Female

DRUGS (5)
  1. FORTEO [Suspect]
     Dosage: 20 UG, QD
     Route: 065
  2. VITAMIN E [Concomitant]
  3. VITAMIN D [Concomitant]
  4. FORTEO [Suspect]
     Dosage: 20 UG, QD
  5. FORTEO [Suspect]
     Indication: OSTEOPOROSIS
     Dosage: 20 UG, QD
     Dates: start: 20090401

REACTIONS (10)
  - FALL [None]
  - FEELING ABNORMAL [None]
  - FATIGUE [None]
  - HEADACHE [None]
  - RHINORRHOEA [None]
  - DIZZINESS [None]
  - INCORRECT STORAGE OF DRUG [None]
  - GAIT DISTURBANCE [None]
  - MALAISE [None]
  - HYPERTENSION [None]
